FAERS Safety Report 7350012-3 (Version None)
Quarter: 2011Q1

REPORT INFORMATION
  Report Type: 
  Country: None (occurrence: None)
  Receive Date: 20110314
  Receipt Date: 20110308
  Transmission Date: 20110831
  Serious: Yes (Death)
  Sender: FDA-Public Use
  Company Number: GB-ROCHE-764228

PATIENT
  Sex: Female
  Weight: 99.5 kg

DRUGS (6)
  1. SALBUTAMOL [Concomitant]
     Dosage: NEBULISER
     Dates: start: 20110105, end: 20110129
  2. OSELTAMIVIR [Suspect]
     Indication: H1N1 INFLUENZA
     Route: 042
     Dates: start: 20110127, end: 20110129
  3. OSELTAMIVIR [Suspect]
     Route: 050
     Dates: start: 20110118, end: 20110127
  4. OMEPRAZOLE [Concomitant]
     Route: 042
     Dates: start: 20110105, end: 20110129
  5. IPRATROPIUM BROMIDE [Concomitant]
     Dosage: NEBULISER
     Dates: start: 20110105, end: 20110129
  6. OSELTAMIVIR [Suspect]
     Route: 050
     Dates: start: 20110105, end: 20110113

REACTIONS (1)
  - MULTI-ORGAN FAILURE [None]
